FAERS Safety Report 10211327 (Version 1)
Quarter: 2014Q2

REPORT INFORMATION
  Report Type: Spontaneous
  Country: US (occurrence: None)
  Receive Date: 20140530
  Receipt Date: 20140530
  Transmission Date: 20141212
  Serious: Yes (Life-Threatening, Hospitalization, Other)
  Sender: FDA-Public Use
  Company Number: None

PATIENT
  Age: 56 Year
  Sex: Male
  Weight: 95.26 kg

DRUGS (1)
  1. TESTIM [Suspect]
     Indication: BLOOD TESTOSTERONE DECREASED
     Dosage: SHOTS 200MG/ GEL 5G  BI WEEKLY AND DAIL  RUB AND SHOT
     Dates: start: 20120501, end: 20140304

REACTIONS (3)
  - Polycythaemia [None]
  - Myocardial infarction [None]
  - Coronary artery occlusion [None]
